FAERS Safety Report 5177392-1 (Version None)
Quarter: 2006Q4

REPORT INFORMATION
  Report Type: 
  Country: None (occurrence: None)
  Receive Date: 20061218
  Receipt Date: 20060711
  Transmission Date: 20070319
  Serious: Yes (Hospitalization)
  Sender: FDA-Public Use
  Company Number: US-AMGEN-US186115

PATIENT
  Sex: Female
  Weight: 58.2 kg

DRUGS (5)
  1. NEULASTA [Suspect]
     Indication: CHEMOTHERAPY
     Route: 058
     Dates: start: 20060503, end: 20060503
  2. UNSPECIFIED ANTINEOPLASTIC AGENT [Suspect]
     Indication: GASTROINTESTINAL STROMAL TUMOUR
     Route: 048
     Dates: start: 20060202, end: 20060301
  3. UNSPECIFIED ANTINEOPLASTIC AGENT [Suspect]
     Route: 048
     Dates: start: 20060323, end: 20060419
  4. LEVAQUIN [Concomitant]
     Route: 065
     Dates: start: 20060502
  5. NEXIUM [Concomitant]
     Route: 048
     Dates: start: 20051111

REACTIONS (3)
  - HEADACHE [None]
  - MUSCULOSKELETAL STIFFNESS [None]
  - WHITE BLOOD CELL COUNT INCREASED [None]
